FAERS Safety Report 21143825 (Version 1)
Quarter: 2022Q3

REPORT INFORMATION
  Report Type: Spontaneous
  Country: US (occurrence: None)
  Receive Date: 20220728
  Receipt Date: 20220728
  Transmission Date: 20221026
  Serious: No
  Sender: FDA-Public Use
  Company Number: None

PATIENT
  Age: 80 Year
  Sex: Female
  Weight: 66.56 kg

DRUGS (8)
  1. VERZENIO [Suspect]
     Active Substance: ABEMACICLIB
     Indication: Breast cancer female
     Dosage: FREQUENCY : TWICE A DAY;?
     Route: 048
  2. VITAMINS [Concomitant]
     Active Substance: VITAMINS
  3. VITAMIN D3 [Concomitant]
     Active Substance: CHOLECALCIFEROL
  4. ATORVASTATIN [Concomitant]
     Active Substance: ATORVASTATIN
  5. HYDROCHLOROTHIAZIDE [Concomitant]
     Active Substance: HYDROCHLOROTHIAZIDE
  6. GAS-X [Concomitant]
     Active Substance: DIMETHICONE
  7. XGEVA [Concomitant]
     Active Substance: DENOSUMAB
  8. FULVESTRANT [Concomitant]
     Active Substance: FULVESTRANT

REACTIONS (4)
  - Disease progression [None]
  - Fatigue [None]
  - Weight decreased [None]
  - Loss of personal independence in daily activities [None]
